FAERS Safety Report 8193788-8 (Version None)
Quarter: 2012Q1

REPORT INFORMATION
  Report Type: 
  Country: None (occurrence: None)
  Receive Date: 20120308
  Receipt Date: 20120228
  Transmission Date: 20120608
  Serious: Yes (Hospitalization)
  Sender: FDA-Public Use
  Company Number: CH-PFIZER INC-2012058234

PATIENT
  Age: 84 Year
  Sex: Female

DRUGS (4)
  1. CORDARONE [Suspect]
     Indication: SICK SINUS SYNDROME
     Dosage: 200 MG, ONCE
     Route: 048
     Dates: end: 20120117
  2. NEXIUM [Interacting]
     Indication: PRODUCT USED FOR UNKNOWN INDICATION
     Dosage: 20 MG, DAILY
     Route: 048
     Dates: start: 20120101
  3. SINTROM [Interacting]
     Indication: SICK SINUS SYNDROME
     Dosage: UNK
     Route: 048
  4. CLARITHROMYCIN [Interacting]
     Indication: BRONCHOPNEUMONIA
     Dosage: 500 MG, 2X/DAY
     Route: 048
     Dates: start: 20120104, end: 20120117

REACTIONS (2)
  - INTERNATIONAL NORMALISED RATIO INCREASED [None]
  - DRUG INTERACTION [None]
